FAERS Safety Report 7005268-3 (Version None)
Quarter: 2010Q3

REPORT INFORMATION
  Report Type: 
  Country: None (occurrence: None)
  Receive Date: 20100921
  Receipt Date: 20100916
  Transmission Date: 20110219
  Serious: Yes (Life-Threatening, Other)
  Sender: FDA-Public Use
  Company Number: PHHY2010DE54891

PATIENT
  Weight: 100 kg

DRUGS (1)
  1. TASIGNA [Suspect]
     Indication: CHROMOSOME ANALYSIS ABNORMAL
     Dosage: 2X400 MG/DAY
     Route: 048
     Dates: start: 20100519, end: 20100812

REACTIONS (5)
  - AUTOIMMUNE THROMBOCYTOPENIA [None]
  - PANCYTOPENIA [None]
  - PULMONARY ALVEOLAR HAEMORRHAGE [None]
  - SHOCK HAEMORRHAGIC [None]
  - THROMBOCYTOPENIA [None]
